FAERS Safety Report 24783471 (Version 9)
Quarter: 2025Q2

REPORT INFORMATION
  Report Type: Spontaneous
  Country: US (occurrence: US)
  Receive Date: 20241227
  Receipt Date: 20250626
  Transmission Date: 20250717
  Serious: Yes (Hospitalization, Other)
  Sender: SANOFI AVENTIS
  Company Number: US-SA-2024SA381351

PATIENT
  Age: 43 Year
  Sex: Male
  Weight: 90.703 kg

DRUGS (28)
  1. FABRAZYME [Suspect]
     Active Substance: AGALSIDASE BETA
     Indication: Fabry^s disease
     Dosage: 85 MG, QOW
     Route: 042
     Dates: start: 20060606
  2. SODIUM CHLORIDE [Concomitant]
     Active Substance: SODIUM CHLORIDE
  3. EPINEPHRINE [Concomitant]
     Active Substance: EPINEPHRINE
  4. PREDNISONE [Concomitant]
     Active Substance: PREDNISONE
  5. STERILE WATER [Concomitant]
     Active Substance: WATER
  6. DOCUSATE SODIUM [Concomitant]
     Active Substance: DOCUSATE SODIUM
  7. BACLOFEN [Concomitant]
     Active Substance: BACLOFEN
  8. HEPARIN [Concomitant]
     Active Substance: HEPARIN SODIUM
  9. SODIUM CHLORIDE [Concomitant]
     Active Substance: SODIUM CHLORIDE
  10. LOSARTAN POTASSIUM [Concomitant]
     Active Substance: LOSARTAN POTASSIUM
  11. TEGRETOL [Concomitant]
     Active Substance: CARBAMAZEPINE
  12. NORTRIPTYLINE HYDROCHLORIDE [Concomitant]
     Active Substance: NORTRIPTYLINE HYDROCHLORIDE
  13. IBUPROFEN [Concomitant]
     Active Substance: IBUPROFEN
  14. VERAPAMIL HCL [Concomitant]
     Active Substance: VERAPAMIL HYDROCHLORIDE
  15. OXYCODONE HYDROCHLORIDE [Concomitant]
     Active Substance: OXYCODONE HYDROCHLORIDE
  16. TAMSULOSIN HYDROCHLORIDE [Concomitant]
     Active Substance: TAMSULOSIN HYDROCHLORIDE
  17. XANAX [Concomitant]
     Active Substance: ALPRAZOLAM
  18. DRONABINOL [Concomitant]
     Active Substance: DRONABINOL
  19. HYDROCHLOROTHIAZIDE [Concomitant]
     Active Substance: HYDROCHLOROTHIAZIDE
  20. DIPHENHYDRAMINE HYDROCHLORIDE [Concomitant]
     Active Substance: DIPHENHYDRAMINE HYDROCHLORIDE
  21. ACETAMINOPHEN [Concomitant]
     Active Substance: ACETAMINOPHEN
  22. SENOKOT-S [Concomitant]
     Active Substance: DOCUSATE SODIUM\SENNOSIDES
  23. CARVEDILOL [Concomitant]
     Active Substance: CARVEDILOL
  24. OXYCODONE AND ACETAMINOPHEN [Concomitant]
     Active Substance: ACETAMINOPHEN\OXYCODONE HYDROCHLORIDE
  25. SOLU-CORTEF [Concomitant]
     Active Substance: HYDROCORTISONE SODIUM SUCCINATE
  26. METHOCARBAMOL [Concomitant]
     Active Substance: METHOCARBAMOL
  27. HYDROCODONE [Concomitant]
     Active Substance: HYDROCODONE
  28. CEFUROXIME [Concomitant]
     Active Substance: CEFUROXIME

REACTIONS (12)
  - Extradural abscess [Unknown]
  - Back pain [Unknown]
  - Spinal operation [Unknown]
  - Procedural pain [Unknown]
  - Weight decreased [Unknown]
  - Postoperative wound infection [Not Recovered/Not Resolved]
  - Post procedural fever [Unknown]
  - Post procedural complication [Unknown]
  - Blood sodium decreased [Unknown]
  - Blood potassium decreased [Unknown]
  - Anaemia [Unknown]
  - Headache [Unknown]

NARRATIVE: CASE EVENT DATE: 20250101
